FAERS Safety Report 22834441 (Version 4)
Quarter: 2023Q4

REPORT INFORMATION
  Report Type: Spontaneous
  Country: KR (occurrence: KR)
  Receive Date: 20230817
  Receipt Date: 20231109
  Transmission Date: 20240110
  Serious: Yes (Death, Other)
  Sender: FDA-Public Use
  Company Number: KR-009507513-2308KOR006294

PATIENT
  Age: 50 Year
  Sex: Male

DRUGS (20)
  1. PREVYMIS [Suspect]
     Active Substance: LETERMOVIR
     Indication: Antiviral prophylaxis
     Dosage: 480MG/24ML, IV, ONCE DAILY
     Route: 042
     Dates: start: 20210830, end: 20210908
  2. PREVYMIS [Suspect]
     Active Substance: LETERMOVIR
     Indication: Antiviral prophylaxis
     Dosage: 480 MG TABLET, ONCE DAILY
     Route: 048
     Dates: start: 20210828, end: 20210829
  3. PREVYMIS [Suspect]
     Active Substance: LETERMOVIR
     Dosage: 480 MG TABLET, ONCE DAILY
     Route: 048
     Dates: start: 20210909, end: 20211204
  4. NOXAFIL [Concomitant]
     Active Substance: POSACONAZOLE
     Indication: Antifungal prophylaxis
     Dosage: 300 MILLIGRAM, QD
     Route: 048
     Dates: start: 20211020
  5. VACRAX [ACICLOVIR] [Concomitant]
     Indication: Infection prophylaxis
     Dosage: 200 MILLIGRAM, BID
     Route: 048
     Dates: start: 20210909
  6. TACROBELL [TACROLIMUS MONOHYDRATE] [Concomitant]
     Indication: Prophylaxis
     Dosage: 0.2 MILLIGRAM, QD
     Route: 042
     Dates: start: 20211215
  7. TACROBELL [TACROLIMUS MONOHYDRATE] [Concomitant]
     Indication: Prophylaxis
     Dosage: 0.5 MILLIGRAM, QD
     Route: 048
     Dates: start: 20211109
  8. RUXOLITINIB [Concomitant]
     Active Substance: RUXOLITINIB
     Indication: Chronic myelomonocytic leukaemia
     Dosage: 5 MILLIGRAM, BID
     Route: 048
     Dates: start: 20211217
  9. FOTAGEL [Concomitant]
     Indication: Diarrhoea
     Dosage: 20 MILLILITER, TID
     Route: 048
     Dates: start: 20211213
  10. BECLOMETHASONE DIPROPIONATE [Concomitant]
     Active Substance: BECLOMETHASONE DIPROPIONATE
     Indication: Diarrhoea
     Dosage: 5 MILLIGRAM, BID
     Route: 048
     Dates: start: 20211213
  11. AMLODIPINE OROTATE [Concomitant]
     Active Substance: AMLODIPINE OROTATE
     Indication: Hypertension
     Dosage: 5 MILLIGRAM, QD
     Route: 048
     Dates: start: 20211006
  12. HUMULIN R [Concomitant]
     Active Substance: INSULIN HUMAN
     Indication: Hyperglycaemia
     Dosage: 10 INTERNATIONAL UNIT, QD
     Route: 042
     Dates: start: 20211216
  13. PANTOPRAZOLE SODIUM [Concomitant]
     Active Substance: PANTOPRAZOLE SODIUM
     Indication: Gastrointestinal disorder prophylaxis
     Dosage: 40 MILLIGRAM, QD
     Route: 042
     Dates: start: 20211215
  14. SULFAMETHOXAZOLE\TRIMETHOPRIM [Concomitant]
     Active Substance: SULFAMETHOXAZOLE\TRIMETHOPRIM
     Indication: Infection prophylaxis
     Dosage: 400 MILLIGRAM, QD
     Route: 048
     Dates: start: 20210910
  15. PREDISOL [METHYLPREDNISOLONE SODIUM SUCCINATE] [Concomitant]
     Indication: Chronic myelomonocytic leukaemia
     Dosage: 125 MILLIGRAM, QD
     Route: 042
     Dates: start: 20211213
  16. SOLONDO [PREDNISOLONE] [Concomitant]
     Indication: Graft versus host disease in gastrointestinal tract
     Dosage: 30 MILLIGRAM, BID
     Route: 048
     Dates: start: 20211207
  17. MORPHINE HYDROCHLORIDE [Concomitant]
     Active Substance: MORPHINE HYDROCHLORIDE
     Indication: Graft versus host disease in gastrointestinal tract
     Dosage: 20 MILLIGRAM, QD
     Route: 042
     Dates: start: 20211213
  18. ALFUZOSIN [Concomitant]
     Active Substance: ALFUZOSIN
     Indication: Bladder cancer
     Dosage: 10 MILLIGRAM, QD
     Route: 048
     Dates: start: 20211109
  19. BARACLE [Concomitant]
     Indication: Hepatic cirrhosis
     Dosage: 0.5 MILLIGRAM, QD
     Route: 048
     Dates: start: 20210814
  20. URSODIOL [Concomitant]
     Active Substance: URSODIOL
     Indication: Aspartate aminotransferase increased
     Dosage: 200 MILLIGRAM, TID
     Route: 048
     Dates: start: 20210914

REACTIONS (1)
  - Multiple organ dysfunction syndrome [Fatal]

NARRATIVE: CASE EVENT DATE: 20220328
